FAERS Safety Report 19768390 (Version 1)
Quarter: 2021Q3

REPORT INFORMATION
  Report Type: Other
  Country: EG (occurrence: EG)
  Receive Date: 20210831
  Receipt Date: 20210831
  Transmission Date: 20211014
  Serious: Yes (Other)
  Sender: FDA-Public Use
  Company Number: EG-ROCHE-2901510

PATIENT
  Age: 36 Year
  Sex: Female
  Weight: 64 kg

DRUGS (2)
  1. DEPOVIT B12 [Concomitant]
  2. OCREVUS [Suspect]
     Active Substance: OCRELIZUMAB
     Indication: MULTIPLE SCLEROSIS
     Route: 042
     Dates: start: 20200212

REACTIONS (1)
  - Multiple sclerosis [Recovered/Resolved]

NARRATIVE: CASE EVENT DATE: 202108
